FAERS Safety Report 9175139 (Version 1)
Quarter: 2013Q1

REPORT INFORMATION
  Report Type: Spontaneous
  Country: FR (occurrence: FR)
  Receive Date: 20130320
  Receipt Date: 20130320
  Transmission Date: 20140127
  Serious: Yes (Hospitalization, Other)
  Sender: FDA-Public Use
  Company Number: FR-ROCHE-1155992

PATIENT
  Age: 73 Year
  Sex: Female
  Weight: 77 kg

DRUGS (12)
  1. MABTHERA [Suspect]
     Indication: RHEUMATOID ARTHRITIS
     Dosage: 1ST CYCLE WITH RITUXIMAB
     Route: 042
     Dates: start: 20110621, end: 201211
  2. MABTHERA [Suspect]
     Route: 042
     Dates: start: 20110705
  3. MABTHERA [Suspect]
     Dosage: 2ND CYCLE WITH RITUXIMAB
     Route: 042
     Dates: start: 20120216
  4. MABTHERA [Suspect]
     Route: 042
     Dates: start: 20120301
  5. MABTHERA [Suspect]
     Dosage: DAY 1 OF 3RD CYCLE WITH RITUXIMAB
     Route: 042
     Dates: start: 20121012, end: 20121012
  6. MABTHERA [Suspect]
     Route: 042
     Dates: start: 20100621
  7. CORTANCYL [Concomitant]
     Indication: RHEUMATOID ARTHRITIS
     Route: 048
  8. ALTEISDUO [Concomitant]
     Indication: HYPERTENSION
     Route: 048
  9. FOSAVANCE [Concomitant]
     Indication: OSTEOPOROSIS
     Dosage: 70/5600
     Route: 065
  10. INIPOMP [Concomitant]
     Indication: PROPHYLAXIS AGAINST GASTROINTESTINAL ULCER
     Dosage: INIPOMP 20
     Route: 048
  11. LEVOTHYROX [Concomitant]
     Indication: HYPOTHYROIDISM
     Route: 048
  12. VASTEN [Concomitant]
     Indication: HYPERCHOLESTEROLAEMIA
     Route: 048

REACTIONS (2)
  - Interstitial lung disease [Recovered/Resolved with Sequelae]
  - Pulmonary fibrosis [Recovered/Resolved with Sequelae]
